FAERS Safety Report 10435105 (Version 3)
Quarter: 2014Q3

REPORT INFORMATION
  Report Type: Spontaneous
  Country: AU (occurrence: None)
  Receive Date: 20140618
  Receipt Date: 20140709
  Transmission Date: 20150326
  Serious: Yes (Hospitalization, Other)
  Sender: FDA-Public Use
  Company Number: AUR-APL-2014-06140

PATIENT
  Age: 34 Year
  Sex: Female

DRUGS (4)
  1. QUETIAPINE (QUETIAPINE) [Suspect]
     Active Substance: QUETIAPINE
     Indication: PRODUCT USED FOR UNKNOWN INDICATION
  2. RANITIDINE [Concomitant]
     Active Substance: RANITIDINE\RANITIDINE HYDROCHLORIDE
  3. ELEVIT RDI (MINERALS NOS, VITAMINS NOS) [Concomitant]
  4. FERROGRAD C (FERROUS SULFATE EXSICCATED SODIUM ASCORBATE) [Concomitant]

REACTIONS (4)
  - Exposure during pregnancy [None]
  - Infected bites [None]
  - Premature labour [None]
  - Arthropod bite [None]

NARRATIVE: CASE EVENT DATE: 20120725
